FAERS Safety Report 6250532-9 (Version None)
Quarter: 2009Q2

REPORT INFORMATION
  Report Type: 
  Country: None (occurrence: None)
  Receive Date: 20090630
  Receipt Date: 20090625
  Transmission Date: 20091009
  Serious: Yes (Life-Threatening, Hospitalization, Disabling)
  Sender: FDA-Public Use
  Company Number: GB-ROCHE-640486

PATIENT
  Age: 46 Year
  Sex: Female
  Weight: 82.5 kg

DRUGS (1)
  1. ORLISTAT [Suspect]
     Indication: OBESITY
     Route: 048
     Dates: start: 20080318, end: 20080821

REACTIONS (2)
  - DIVERTICULAR PERFORATION [None]
  - DIVERTICULUM [None]
